FAERS Safety Report 15484046 (Version 1)
Quarter: 2018Q4

REPORT INFORMATION
  Report Type: Spontaneous
  Country: FR (occurrence: FR)
  Receive Date: 20181010
  Receipt Date: 20181010
  Transmission Date: 20190205
  Serious: Yes (Hospitalization, Other)
  Sender: FDA-Public Use
  Company Number: FR-GILEAD-2018-0367160

PATIENT
  Age: 79 Year
  Sex: Male
  Weight: 75 kg

DRUGS (8)
  1. MABTHERA [Suspect]
     Active Substance: RITUXIMAB
     Indication: CHRONIC LYMPHOCYTIC LEUKAEMIA
     Dosage: 1 DF, CYCLICAL
     Route: 042
     Dates: start: 201412
  2. FLECAINIDE                         /00627102/ [Concomitant]
     Active Substance: FLECAINIDE ACETATE
  3. ZYDELIG [Suspect]
     Active Substance: IDELALISIB
     Indication: CHRONIC LYMPHOCYTIC LEUKAEMIA
     Dosage: 100 MG, QD
     Route: 048
     Dates: start: 20160802
  4. ACEBUTOLOL [Concomitant]
     Active Substance: ACEBUTOLOL
  5. DABIGATRAN ETEXILATE [Concomitant]
     Active Substance: DABIGATRAN ETEXILATE
  6. LANSOPRAZOLE. [Concomitant]
     Active Substance: LANSOPRAZOLE
  7. AMLOR [Concomitant]
     Active Substance: AMLODIPINE BESYLATE
  8. ROSUVASTATINE                      /01588601/ [Concomitant]
     Active Substance: ROSUVASTATIN

REACTIONS (2)
  - Pulmonary arterial hypertension [Not Recovered/Not Resolved]
  - Dyspnoea [Not Recovered/Not Resolved]

NARRATIVE: CASE EVENT DATE: 201806
